FAERS Safety Report 22690541 (Version 11)
Quarter: 2023Q4

REPORT INFORMATION
  Report Type: Report from Study
  Country: GT (occurrence: GT)
  Receive Date: 20230711
  Receipt Date: 20231116
  Transmission Date: 20240110
  Serious: Yes (Other)
  Sender: FDA-Public Use
  Company Number: GT-002147023-NVSC2023GT152459

PATIENT
  Age: 73 Year
  Sex: Female

DRUGS (4)
  1. KISQALI [Suspect]
     Active Substance: RIBOCICLIB
     Indication: Breast cancer metastatic
     Dosage: 600 MG, QD
     Route: 048
     Dates: start: 20230622
  2. KISQALI [Suspect]
     Active Substance: RIBOCICLIB
     Dosage: 600 MG, QD (ONCE A DAY)
     Route: 048
     Dates: start: 202306
  3. KISQALI [Suspect]
     Active Substance: RIBOCICLIB
     Dosage: 600 MG, QD
     Route: 048
     Dates: start: 20230816
  4. FULVESTRANT [Suspect]
     Active Substance: FULVESTRANT
     Indication: Product used for unknown indication
     Dosage: UNK
     Route: 065

REACTIONS (23)
  - Metastases to bone [Unknown]
  - Metastases to spine [Unknown]
  - Urinary tract infection [Not Recovered/Not Resolved]
  - Discomfort [Unknown]
  - Oliguria [Unknown]
  - Pain in extremity [Not Recovered/Not Resolved]
  - Pain [Not Recovered/Not Resolved]
  - Discomfort [Recovered/Resolved]
  - Abdominal pain upper [Unknown]
  - Ill-defined disorder [Unknown]
  - Back pain [Not Recovered/Not Resolved]
  - Fatigue [Unknown]
  - Nausea [Unknown]
  - Nasopharyngitis [Unknown]
  - Diarrhoea [Unknown]
  - Dehydration [Unknown]
  - Malaise [Unknown]
  - Hypersensitivity [Recovered/Resolved]
  - Rash [Unknown]
  - Cough [Recovering/Resolving]
  - Arthralgia [Unknown]
  - Hypotension [Unknown]
  - Muscle spasms [Not Recovered/Not Resolved]

NARRATIVE: CASE EVENT DATE: 20230718
